FAERS Safety Report 12413809 (Version 1)
Quarter: 2016Q2

REPORT INFORMATION
  Report Type: Spontaneous
  Country: IT (occurrence: IT)
  Receive Date: 20160527
  Receipt Date: 20160527
  Transmission Date: 20160815
  Serious: Yes (Death, Hospitalization)
  Sender: FDA-Public Use
  Company Number: IT-DEPOMED, INC.-IT-2016DEP009270

PATIENT

DRUGS (5)
  1. FENTANYL CITRATE. [Suspect]
     Active Substance: FENTANYL CITRATE
     Indication: CANCER PAIN
     Dosage: 100 ?G, PRN, 1 PUFF EVERY THREE DAYS AT BEGINNING
     Route: 055
     Dates: start: 20151009, end: 20151021
  2. MORPHINE SULFATE. [Suspect]
     Active Substance: MORPHINE SULFATE
     Dosage: 50 MG, BID, 2 TABLETS 10MG + 1 TABLET 30MG
     Route: 048
     Dates: start: 20151105, end: 20151110
  3. MORPHINE SULFATE. [Suspect]
     Active Substance: MORPHINE SULFATE
     Indication: CANCER PAIN
     Dosage: 70 MG, BID, FOUR 10 MG + ONE 30 MG TABLET
     Route: 048
     Dates: start: 20151030, end: 20151112
  4. GABAPENTIN. [Concomitant]
     Active Substance: GABAPENTIN
     Indication: CANCER PAIN
     Dosage: DF
     Route: 048
     Dates: start: 20151021, end: 20151112
  5. ABSTRAL [Suspect]
     Active Substance: FENTANYL CITRATE
     Indication: CANCER PAIN
     Dosage: QD AS NEEDED
     Route: 048
     Dates: start: 20151021, end: 20151112

REACTIONS (4)
  - Death [Fatal]
  - Hyperhidrosis [Unknown]
  - Respiratory depression [Unknown]
  - Sopor [Unknown]

NARRATIVE: CASE EVENT DATE: 20151112
